FAERS Safety Report 8779510 (Version 2)
Quarter: 2015Q3

REPORT INFORMATION
  Report Type: Report from Study
  Country: US (occurrence: US)
  Receive Date: 20120912
  Receipt Date: 20150911
  Transmission Date: 20151125
  Serious: Yes (Other)
  Sender: FDA-Public Use
  Company Number: US-ROCHE-1098305

PATIENT
  Sex: Male

DRUGS (6)
  1. ACTIVASE [Suspect]
     Active Substance: ALTEPLASE
     Indication: CHEST PAIN
     Route: 040
     Dates: start: 19930711
  2. NITROGLYCERIN. [Concomitant]
     Active Substance: NITROGLYCERIN
     Route: 042
     Dates: start: 19930711
  3. PROCARDIA (UNITED STATES) [Concomitant]
     Route: 065
     Dates: start: 19930711
  4. PHENERGAN [Concomitant]
     Active Substance: PROMETHAZINE HYDROCHLORIDE
     Route: 042
     Dates: start: 19930711
  5. MORPHINE SULPHATE [Concomitant]
     Active Substance: MORPHINE SULFATE
     Route: 042
     Dates: start: 19930711
  6. ACTIVASE [Suspect]
     Active Substance: ALTEPLASE
     Indication: ANGINA PECTORIS

REACTIONS (2)
  - Seizure [Unknown]
  - Ventricular fibrillation [Unknown]
